FAERS Safety Report 15783943 (Version 2)
Quarter: 2019Q1

REPORT INFORMATION
  Report Type: Spontaneous
  Country: US (occurrence: US)
  Receive Date: 20190102
  Receipt Date: 20190128
  Transmission Date: 20190417
  Serious: No
  Sender: FDA-Public Use
  Company Number: US-TEVA-2018-US-994165

PATIENT
  Age: 31 Year
  Sex: Female

DRUGS (2)
  1. FROVA [Concomitant]
     Active Substance: FROVATRIPTAN SUCCINATE
     Dosage: AS REQUIRED
  2. AJOVY [Suspect]
     Active Substance: FREMANEZUMAB-VFRM
     Indication: MIGRAINE
     Dosage: 225MG EVERY MONTH
     Dates: start: 201811

REACTIONS (6)
  - Injection site pain [Unknown]
  - Drug ineffective [Not Recovered/Not Resolved]
  - Injection site swelling [Unknown]
  - Injection site erythema [Unknown]
  - Injection site pruritus [Unknown]
  - Incorrect route of product administration [Unknown]

NARRATIVE: CASE EVENT DATE: 20181225
